FAERS Safety Report 15401569 (Version 1)
Quarter: 2018Q3

REPORT INFORMATION
  Report Type: Spontaneous
  Country: US (occurrence: US)
  Receive Date: 20180914
  Receipt Date: 20180914
  Transmission Date: 20181010
  Serious: Yes (Other)
  Sender: FDA-Public Use
  Company Number: None

PATIENT
  Age: 78 Year
  Sex: Female

DRUGS (1)
  1. VALSARTAN. [Suspect]
     Active Substance: VALSARTAN
     Route: 048
     Dates: start: 20160114, end: 20180813

REACTIONS (3)
  - Malignant melanoma [None]
  - Product use issue [None]
  - Product impurity [None]

NARRATIVE: CASE EVENT DATE: 20180101
